FAERS Safety Report 6541113-8 (Version None)
Quarter: 2010Q1

REPORT INFORMATION
  Report Type: 
  Country: None (occurrence: None)
  Receive Date: 20100118
  Receipt Date: 20091218
  Transmission Date: 20100710
  Serious: No
  Sender: FDA-Public Use
  Company Number: US-BAYER-200943498NA

PATIENT
  Age: 51 Year
  Sex: Female
  Weight: 87 kg

DRUGS (4)
  1. ULTRAVIST 300 [Suspect]
     Indication: COMPUTERISED TOMOGRAM ABDOMEN
     Dosage: TOTAL DAILY DOSE: 75 ML  UNIT DOSE: 200 ML
     Route: 042
     Dates: start: 20091218, end: 20091218
  2. PREVACID [Concomitant]
  3. HYDROCHLOROTHIAZIDE [Concomitant]
  4. WELLBUTRIN [Concomitant]

REACTIONS (1)
  - URTICARIA [None]
